FAERS Safety Report 7542743-7 (Version None)
Quarter: 2011Q2

REPORT INFORMATION
  Report Type: 
  Country: None (occurrence: None)
  Receive Date: 20110613
  Receipt Date: 20110606
  Transmission Date: 20111010
  Serious: Yes (Hospitalization)
  Sender: FDA-Public Use
  Company Number: A0920887A

PATIENT
  Age: 92 Year
  Sex: Female

DRUGS (5)
  1. ADVAIR DISKUS 100/50 [Suspect]
     Indication: CHRONIC OBSTRUCTIVE PULMONARY DISEASE
     Dosage: 1PUFF PER DAY
     Route: 055
     Dates: start: 20080301
  2. CIPROFLOXACIN HCL [Concomitant]
  3. ASPIRIN [Concomitant]
  4. DILTIAZEM [Concomitant]
  5. SPIRIVA [Concomitant]

REACTIONS (4)
  - DRUG ADMINISTRATION ERROR [None]
  - CHRONIC OBSTRUCTIVE PULMONARY DISEASE [None]
  - DRUG INEFFECTIVE [None]
  - PRODUCT QUALITY ISSUE [None]
